FAERS Safety Report 4701056-9 (Version None)
Quarter: 2005Q2

REPORT INFORMATION
  Report Type: 
  Country: None (occurrence: None)
  Receive Date: 20050628
  Receipt Date: 20050617
  Transmission Date: 20051028
  Serious: Yes (Death, Life-Threatening, Hospitalization)
  Sender: FDA-Public Use
  Company Number: JP-JNJFOC-20050101243

PATIENT
  Sex: Male

DRUGS (12)
  1. INFLIXIMAB [Suspect]
     Dosage: 204 MG ^DIV^ ADMINISTRATION
     Route: 042
  2. INFLIXIMAB [Suspect]
     Dosage: 204 MG ^DIV^ ADMINISTRATION
     Route: 042
  3. INFLIXIMAB [Suspect]
     Indication: RHEUMATOID ARTHRITIS
     Dosage: 204 MG ^DIV^ ADMINISTRATION
     Route: 042
  4. RHEUMATREX [Suspect]
     Indication: RHEUMATOID ARTHRITIS
     Route: 049
  5. PREDONINE [Suspect]
     Route: 049
  6. PREDONINE [Suspect]
     Indication: ADRENOCORTICAL STEROID THERAPY
     Route: 049
  7. PSL [Concomitant]
     Route: 049
  8. RIMATIL [Concomitant]
     Indication: RHEUMATOID ARTHRITIS
     Route: 049
  9. LOXONIN [Concomitant]
     Indication: ANTIINFLAMMATORY THERAPY
     Route: 049
  10. FOLIAMIN [Concomitant]
     Route: 049
  11. BONALON [Concomitant]
     Indication: RHEUMATOID ARTHRITIS
     Route: 049
  12. HUMACART - R [Concomitant]
     Dosage: 300 UNITS - 32 UNITS DAILY
     Route: 058

REACTIONS (6)
  - ARTHRALGIA [None]
  - BLOOD PRESSURE DECREASED [None]
  - DISSEMINATED TUBERCULOSIS [None]
  - LIVER DISORDER [None]
  - MULTI-ORGAN FAILURE [None]
  - PNEUMONIA [None]
